FAERS Safety Report 13402559 (Version 4)
Quarter: 2017Q3

REPORT INFORMATION
  Report Type: Report from Study
  Country: None (occurrence: UY)
  Receive Date: 20170404
  Receipt Date: 20170713
  Transmission Date: 20171127
  Serious: Yes (Death, Hospitalization, Other)
  Sender: FDA-Public Use
  Company Number: UY-ABBVIE-17P-168-1921970-00

PATIENT
  Age: 63 Year
  Sex: Female

DRUGS (2)
  1. KETOFEN [Concomitant]
     Active Substance: KETOPROFEN
     Indication: PRODUCT USED FOR UNKNOWN INDICATION
     Route: 048
  2. HUMIRA [Suspect]
     Active Substance: ADALIMUMAB
     Indication: RHEUMATOID ARTHRITIS
     Route: 058
     Dates: start: 20160822, end: 20170318

REACTIONS (6)
  - Pleural effusion [Recovering/Resolving]
  - Intra-abdominal fluid collection [Recovered/Resolved]
  - Urinary tract infection [Recovered/Resolved]
  - Lung operation [Recovering/Resolving]
  - Ovarian neoplasm [Fatal]
  - Pulmonary oedema [Recovered/Resolved]

NARRATIVE: CASE EVENT DATE: 201703
